FAERS Safety Report 4625085-9 (Version None)
Quarter: 2005Q1

REPORT INFORMATION
  Report Type: 
  Country: None (occurrence: None)
  Receive Date: 20050325
  Receipt Date: 20050127
  Transmission Date: 20050727
  Serious: No
  Sender: FDA-Public Use
  Company Number: US_0502113238

PATIENT
  Age: 70 Year
  Sex: Female

DRUGS (6)
  1. FORTEO [Suspect]
     Indication: OSTEOPOROSIS
     Dates: start: 20050125
  2. FOSAMAX [Concomitant]
  3. GLUCOSAMINE CHONDROITIN [Concomitant]
  4. VIACTIV [Concomitant]
  5. FOLIC ACID [Concomitant]
  6. FISH OIL [Concomitant]

REACTIONS (6)
  - ACCIDENTAL OVERDOSE [None]
  - INJECTION SITE ERYTHEMA [None]
  - INJECTION SITE PRURITUS [None]
  - INSOMNIA [None]
  - MEDICATION ERROR [None]
  - NERVOUSNESS [None]
